FAERS Safety Report 5739670-4 (Version None)
Quarter: 2008Q2

REPORT INFORMATION
  Report Type: 
  Country: None (occurrence: None)
  Receive Date: 20080513
  Receipt Date: 20080424
  Transmission Date: 20081010
  Serious: Yes (Death)
  Sender: FDA-Public Use
  Company Number: 805#8#2008-00009

PATIENT

DRUGS (1)
  1. ALPROSTADIL [Suspect]
     Indication: THROMBOSIS PROPHYLAXIS
     Dosage: INTRAVENOUS DRIP
     Route: 041

REACTIONS (1)
  - CEREBRAL INFARCTION [None]
